FAERS Safety Report 7771434-2 (Version None)
Quarter: 2011Q3

REPORT INFORMATION
  Report Type: 
  Country: None (occurrence: None)
  Receive Date: 20110922
  Receipt Date: 20110422
  Transmission Date: 20111222
  Serious: No
  Sender: FDA-Public Use
  Company Number: US-ASTRAZENECA-2011SE23359

PATIENT
  Age: 26 Year
  Sex: Male
  Weight: 90.3 kg

DRUGS (13)
  1. SEROQUEL [Suspect]
     Dosage: 100MG TABLET AND TAKE HALF A TABLET OR ANOTHER WHOLE TABLET
     Route: 048
  2. SEROQUEL [Suspect]
     Route: 048
     Dates: start: 20100101
  3. SUBOXONE [Concomitant]
     Indication: PAIN
  4. SEROQUEL [Suspect]
     Indication: ANXIETY
     Route: 048
     Dates: start: 20100101, end: 20100101
  5. SEROQUEL [Suspect]
     Route: 048
     Dates: start: 20100101
  6. SEROQUEL [Suspect]
     Dosage: 100MG TABLET AND TAKE HALF A TABLET OR ANOTHER WHOLE TABLET
     Route: 048
  7. SEROQUEL [Suspect]
     Indication: DEPRESSION
     Route: 048
     Dates: start: 20100101, end: 20100101
  8. SEROQUEL [Suspect]
     Route: 048
     Dates: start: 20100101
  9. SEROQUEL [Suspect]
     Dosage: 100MG TABLET AND TAKE HALF A TABLET OR ANOTHER WHOLE TABLET
     Route: 048
  10. SEROQUEL [Suspect]
     Dosage: 100MG TABLET AND TAKE HALF A TABLET OR ANOTHER WHOLE TABLET
     Route: 048
  11. SEROQUEL [Suspect]
     Indication: SLEEP DISORDER
     Route: 048
     Dates: start: 20100101, end: 20100101
  12. SEROQUEL [Suspect]
     Route: 048
     Dates: start: 20100101
  13. SEROQUEL [Suspect]
     Indication: BIPOLAR DISORDER
     Route: 048
     Dates: start: 20100101, end: 20100101

REACTIONS (7)
  - MIDDLE INSOMNIA [None]
  - SOMNOLENCE [None]
  - INCORRECT DOSE ADMINISTERED [None]
  - DRUG INEFFECTIVE [None]
  - HYPERSOMNIA [None]
  - DRUG PRESCRIBING ERROR [None]
  - THERAPEUTIC RESPONSE UNEXPECTED [None]
